FAERS Safety Report 8227277-9 (Version None)
Quarter: 2012Q1

REPORT INFORMATION
  Report Type: 
  Country: None (occurrence: None)
  Receive Date: 20120322
  Receipt Date: 20120315
  Transmission Date: 20120608
  Serious: Yes (Other)
  Sender: FDA-Public Use
  Company Number: GXKR2012DE001183

PATIENT

DRUGS (1)
  1. CARBAMAZEPINE [Suspect]
     Indication: NEURALGIA
     Dosage: DAILY DOSE: 600 MG MILLGRAM(S) EVERY DAYS
     Dates: start: 20110524, end: 20110601

REACTIONS (1)
  - LENTICULAR OPACITIES [None]
